FAERS Safety Report 14148367 (Version 1)
Quarter: 2017Q4

REPORT INFORMATION
  Report Type: Spontaneous
  Country: GB (occurrence: GB)
  Receive Date: 20171101
  Receipt Date: 20171101
  Transmission Date: 20180321
  Serious: Yes (Hospitalization)
  Sender: FDA-Public Use
  Company Number: GB-ALEMBIC PHARMACUETICALS LIMITED-2017SCAL000842

PATIENT

DRUGS (1)
  1. LITHIUM CARBONATE. [Suspect]
     Active Substance: LITHIUM CARBONATE
     Indication: BIPOLAR DISORDER
     Dosage: UNK

REACTIONS (3)
  - Toxicity to various agents [Unknown]
  - Neuropsychiatric symptoms [Unknown]
  - Endocrine disorder [Unknown]
